FAERS Safety Report 9519155 (Version 1)
Quarter: 2013Q1

REPORT INFORMATION
  Report Type: Spontaneous
  Country: US (occurrence: None)
  Receive Date: 20130305
  Receipt Date: 20130305
  Transmission Date: 20140127
  Serious: Yes (Hospitalization)
  Sender: FDA-Public Use
  Company Number: 163-21880-12010629

PATIENT
  Age: 75 Year
  Sex: Female

DRUGS (11)
  1. REVLIMID (LENALIDOMIDE) (CAPSULES) [Suspect]
     Indication: PLASMA CELL MYELOMA
     Dosage: 15 MG, EVERU OTHER DAY X14/21D, PO
     Route: 048
     Dates: start: 20111210
  2. DEXAMETHASONE (DEXAMETHASONE) (UNKNOWN) [Concomitant]
  3. VELCADE [Concomitant]
  4. ASA (ACETYLSALICYLIC ACID) (UNKNOWN) [Concomitant]
  5. HYDROCODONE/APAP (VICODIN) (UNKNOWN) [Concomitant]
  6. ACYCLOVIR (ACICLOVIR) (UNKNOWN) [Concomitant]
  7. IMIPRAMINE (IMIPRAMINE) (UNKNOWN) [Concomitant]
  8. ALENDRONATE (ALENDRONATE SODIUM) (UNKNOWN) [Concomitant]
  9. PREMARIN (ESTROGENS CONJUGATED) (UNKNOWN) [Concomitant]
  10. MEDROXYPROGESTERONE (MEDROXYPROGESTERONE) (UNKNOWN)? [Concomitant]
  11. OMEPRAZOLE (OMEPRAZOLE) (UNKNOWN) [Concomitant]

REACTIONS (3)
  - Cardiomyopathy [None]
  - Acute myocardial infarction [None]
  - Cardiac failure congestive [None]
